FAERS Safety Report 16900394 (Version 1)
Quarter: 2019Q4

REPORT INFORMATION
  Report Type: Spontaneous
  Country: US (occurrence: US)
  Receive Date: 20191009
  Receipt Date: 20191009
  Transmission Date: 20200122
  Serious: No
  Sender: FDA-Public Use
  Company Number: US-KALEO, INC.-2019KL000100

PATIENT
  Sex: Female

DRUGS (1)
  1. AUVI-Q [Suspect]
     Active Substance: EPINEPHRINE
     Indication: ANAPHYLACTIC REACTION
     Dates: start: 2019, end: 2019

REACTIONS (5)
  - Injection site pain [Unknown]
  - Accidental exposure to product [Recovered/Resolved]
  - Nervousness [Unknown]
  - Injection site erythema [Unknown]
  - Anxiety [Unknown]

NARRATIVE: CASE EVENT DATE: 2019
